FAERS Safety Report 8404818-X (Version None)
Quarter: 2012Q2

REPORT INFORMATION
  Report Type: 
  Country: None (occurrence: None)
  Receive Date: 20120601
  Receipt Date: 20120530
  Transmission Date: 20120825
  Serious: Yes (Death, Life-Threatening, Hospitalization)
  Sender: FDA-Public Use
  Company Number: FR-MERCK-1205FRA00120

PATIENT
  Age: 45 Year
  Sex: Male
  Weight: 45 kg

DRUGS (3)
  1. ISENTRESS [Suspect]
     Indication: HIV INFECTION
     Route: 048
     Dates: start: 20101004
  2. FLUCONAZOLE [Concomitant]
     Indication: PROPHYLAXIS
     Route: 048
  3. EMTRICITABINE AND TENOFOVIR DISOPROXIL FUMARATE [Concomitant]
     Indication: HIV INFECTION
     Route: 048
     Dates: start: 20101004

REACTIONS (1)
  - PHARYNGEAL CANCER STAGE UNSPECIFIED [None]
